FAERS Safety Report 5764020-7 (Version None)
Quarter: 2008Q2

REPORT INFORMATION
  Report Type: 
  Country: None (occurrence: None)
  Receive Date: 20080602
  Receipt Date: 20080213
  Transmission Date: 20081010
  Serious: No
  Sender: FDA-Public Use
  Company Number: PHEH2008US01938

PATIENT

DRUGS (3)
  1. TEKTURNA [Suspect]
  2. DIOVAN [Suspect]
     Indication: HYPERTENSION
  3. VERELAN [Suspect]

REACTIONS (2)
  - BLOOD ALDOSTERONE INCREASED [None]
  - RENIN DECREASED [None]
